FAERS Safety Report 15273041 (Version 2)
Quarter: 2018Q3

REPORT INFORMATION
  Report Type: Report from Study
  Country: MX (occurrence: MX)
  Receive Date: 20180813
  Receipt Date: 20180831
  Transmission Date: 20181010
  Serious: No
  Sender: FDA-Public Use
  Company Number: PHHY2018MX063096

PATIENT
  Age: 33 Year
  Sex: Male

DRUGS (9)
  1. REVOLADE [Suspect]
     Active Substance: ELTROMBOPAG
     Indication: PLATELET COUNT DECREASED
     Dosage: 25 MG, UNK
     Route: 048
     Dates: start: 201710
  2. REVOLADE [Suspect]
     Active Substance: ELTROMBOPAG
     Dosage: 1 DF, Q72H
     Route: 048
     Dates: start: 201801
  3. REVOLADE [Suspect]
     Active Substance: ELTROMBOPAG
     Dosage: 2 DF, DAILY FOR 2 WEEKS
     Route: 048
     Dates: start: 201605
  4. OMEPRAZOLE. [Concomitant]
     Active Substance: OMEPRAZOLE
     Indication: GASTRIC DISORDER
     Dosage: 1 DF, AT NIGHT
     Route: 048
     Dates: start: 2016
  5. VITAMIN B12 [Concomitant]
     Active Substance: CYANOCOBALAMIN
     Indication: VITAMIN SUPPLEMENTATION
     Dosage: 1 DF, QD (DAILY)
     Route: 048
     Dates: start: 2016
  6. REVOLADE [Suspect]
     Active Substance: ELTROMBOPAG
     Dosage: 2 DF, DAILY FOR 2 WEEKS
     Route: 048
     Dates: start: 201705, end: 201712
  7. REVOLADE [Suspect]
     Active Substance: ELTROMBOPAG
     Dosage: UNK REDUCED DOSE
     Route: 048
  8. REVOLADE [Suspect]
     Active Substance: ELTROMBOPAG
     Dosage: 2 DF, DAILY FOR 2 WEEKS
     Route: 048
     Dates: start: 201712, end: 201801
  9. FOLIC ACID. [Concomitant]
     Active Substance: FOLIC ACID
     Indication: VITAMIN SUPPLEMENTATION
     Dosage: 1 DF, QD (DAILY)
     Route: 048
     Dates: start: 2016

REACTIONS (2)
  - Incorrect dose administered [Unknown]
  - Off label use [Unknown]

NARRATIVE: CASE EVENT DATE: 201711
